FAERS Safety Report 17923924 (Version 1)
Quarter: 2020Q2

REPORT INFORMATION
  Report Type: Report from Study
  Country: IT (occurrence: IT)
  Receive Date: 20200622
  Receipt Date: 20200622
  Transmission Date: 20200714
  Serious: Yes (Other)
  Sender: FDA-Public Use
  Company Number: IT-MYLANLABS-2020M1057538

PATIENT
  Age: 36 Year
  Sex: Female

DRUGS (2)
  1. EPIRUBICIN [Suspect]
     Active Substance: EPIRUBICIN
     Indication: INVASIVE DUCTAL BREAST CARCINOMA
     Dosage: 75 MILLIGRAM/SQ. METER EVERY 3 WEEKS AFTER 16 WEEKS OF GESTATIONAL AGE
     Route: 065
  2. CYCLOPHOSPHAMIDE. [Suspect]
     Active Substance: CYCLOPHOSPHAMIDE
     Indication: INVASIVE DUCTAL BREAST CARCINOMA
     Dosage: 750 MILLIGRAM/SQ. METER 3 WEEK
     Route: 065

REACTIONS (3)
  - Angiopathy [Unknown]
  - Placental disorder [Unknown]
  - Maternal exposure during pregnancy [Unknown]
